FAERS Safety Report 19647764 (Version 1)
Quarter: 2021Q3

REPORT INFORMATION
  Report Type: Report from Study
  Country: CA (occurrence: CA)
  Receive Date: 20210802
  Receipt Date: 20210802
  Transmission Date: 20211014
  Serious: Yes (Other)
  Sender: FDA-Public Use
  Company Number: CA-JNJFOC-20210758456

PATIENT
  Age: 16 Year
  Sex: Male
  Weight: 85.35 kg

DRUGS (1)
  1. REMICADE [Suspect]
     Active Substance: INFLIXIMAB
     Indication: COLITIS ULCERATIVE
     Dosage: DOSE RECEIVED ON 19?JAN?2021?ON 27?JUL?2021, THE PATIENT RECEIVED 07TH INFUSION OF 600 MG INFLIXIMAB
     Route: 042
     Dates: start: 20201215

REACTIONS (5)
  - Inappropriate schedule of product administration [Unknown]
  - Product use issue [Unknown]
  - General physical health deterioration [Unknown]
  - Clostridium difficile infection [Recovering/Resolving]
  - Off label use [Unknown]

NARRATIVE: CASE EVENT DATE: 20201215
